FAERS Safety Report 9736325 (Version 1)
Quarter: 2013Q4

REPORT INFORMATION
  Report Type: Report from Study
  Country: GB (occurrence: GB)
  Receive Date: 20131206
  Receipt Date: 20131206
  Transmission Date: 20140711
  Serious: Yes (Hospitalization)
  Sender: FDA-Public Use
  Company Number: GB-ROCHE-1312455

PATIENT
  Sex: Male

DRUGS (2)
  1. RITUXIMAB [Suspect]
     Indication: RHEUMATOID ARTHRITIS
     Dosage: DATE OF LAST DOSE PRIOR TO SAE:15/JUL/2009
     Route: 065
     Dates: start: 20080815
  2. HYDROXYCHLOROQUINE [Concomitant]
     Route: 065
     Dates: start: 201009

REACTIONS (2)
  - Plasma cell myeloma [Unknown]
  - Myeloid leukaemia [Unknown]
